FAERS Safety Report 6878173-0 (Version None)
Quarter: 2010Q2

REPORT INFORMATION
  Report Type: 
  Country: None (occurrence: None)
  Receive Date: 20100623
  Receipt Date: 20080709
  Transmission Date: 20101027
  Serious: No
  Sender: FDA-Public Use
  Company Number: 2008-00099

PATIENT
  Age: 52 Year
  Sex: Female
  Weight: 61.2356 kg

DRUGS (2)
  1. ZICAM COLD REMEDY NASAL GEL [Suspect]
     Indication: NASOPHARYNGITIS
     Dosage: 2-3X/D X 5 DAYS
     Dates: start: 20080524, end: 20080529
  2. TIMOLOL OPTHALMIC DROPS [Concomitant]

REACTIONS (1)
  - ANOSMIA [None]
